FAERS Safety Report 17632546 (Version 1)
Quarter: 2020Q2

REPORT INFORMATION
  Report Type: Spontaneous
  Country: US (occurrence: US)
  Receive Date: 20200406
  Receipt Date: 20200406
  Transmission Date: 20200713
  Serious: Yes (Other)
  Sender: FDA-Public Use
  Company Number: US-ALLERGAN-2014543US

PATIENT
  Sex: Female

DRUGS (1)
  1. NORETHINDRONE UNK [Suspect]
     Active Substance: NORETHINDRONE ACETATE
     Indication: CONTRACEPTION
     Dosage: 0.35 MG, QD
     Route: 048

REACTIONS (1)
  - Coronary artery dissection [Unknown]
